FAERS Safety Report 6628948-8 (Version None)
Quarter: 2010Q1

REPORT INFORMATION
  Report Type: 
  Country: None (occurrence: None)
  Receive Date: 20100311
  Receipt Date: 20090806
  Transmission Date: 20100710
  Serious: No
  Sender: FDA-Public Use
  Company Number: US-BIOGENIDEC-2009BI024636

PATIENT
  Age: 41 Year
  Sex: Female

DRUGS (3)
  1. AVONEX [Suspect]
     Indication: MULTIPLE SCLEROSIS
     Route: 030
     Dates: start: 20030701, end: 20031001
  2. AVONEX [Suspect]
     Route: 030
     Dates: start: 20031001, end: 20040101
  3. AVONEX [Suspect]
     Route: 030
     Dates: start: 20040101

REACTIONS (4)
  - CYSTITIS [None]
  - FATIGUE [None]
  - INFLUENZA LIKE ILLNESS [None]
  - VERTIGO [None]
